FAERS Safety Report 5493119-8 (Version None)
Quarter: 2007Q4

REPORT INFORMATION
  Report Type: 
  Country: None (occurrence: None)
  Receive Date: 20071019
  Receipt Date: 20071015
  Transmission Date: 20080405
  Serious: Yes (Other)
  Sender: FDA-Public Use
  Company Number: 2007SP015657

PATIENT
  Age: 70 Year
  Sex: Male
  Weight: 70 kg

DRUGS (3)
  1. VIRAFERONPEG [Suspect]
     Indication: HEPATITIS C
     Dosage: 100 MCG; QW; SC
     Route: 058
     Dates: start: 20061011, end: 20070418
  2. REBETOL [Suspect]
     Indication: HEPATITIS C
     Dosage: 1000 MG; QD; PO
     Route: 048
     Dates: start: 20061011, end: 20070418
  3. EPREX [Concomitant]

REACTIONS (2)
  - IRIDOCYCLITIS [None]
  - OCULAR HYPERTENSION [None]
